FAERS Safety Report 12483779 (Version 1)
Quarter: 2016Q2

REPORT INFORMATION
  Report Type: Spontaneous
  Country: US (occurrence: US)
  Receive Date: 20160621
  Receipt Date: 20160621
  Transmission Date: 20160815
  Serious: No
  Sender: FDA-Public Use
  Company Number: US-PFIZER INC-2016302573

PATIENT
  Age: 68 Year
  Sex: Female

DRUGS (1)
  1. LYRICA [Suspect]
     Active Substance: PREGABALIN
     Indication: BURNING SENSATION
     Dosage: 75 MG ONE CAPSULE BY MOUTH TWO TIMES A DAY
     Route: 048
     Dates: start: 20160115, end: 201601

REACTIONS (4)
  - Speech disorder [Unknown]
  - Pain [Unknown]
  - Dyskinesia [Not Recovered/Not Resolved]
  - Drug ineffective [Unknown]
